FAERS Safety Report 8801873 (Version 1)
Quarter: 2012Q4

REPORT INFORMATION
  Report Type: 
  Country: JP (occurrence: JP)
  Receive Date: 20120921
  Receipt Date: 20120921
  Transmission Date: 20130627
  Serious: Yes (Other)
  Sender: FDA-Public Use
  Company Number: JP-ROCHE-1115767

PATIENT
  Age: 75 Year
  Sex: Male

DRUGS (1)
  1. XELODA [Suspect]
     Indication: LARGE INTESTINE CARCINOMA
     Dosage: 2 weeks administration and 1 week rest
     Route: 048
     Dates: start: 20120104, end: 201207

REACTIONS (2)
  - Hyperglycaemia [Unknown]
  - Jaundice [Unknown]
